FAERS Safety Report 19959189 (Version 2)
Quarter: 2021Q4

REPORT INFORMATION
  Report Type: Spontaneous
  Country: US (occurrence: US)
  Receive Date: 20211015
  Receipt Date: 20211101
  Transmission Date: 20220304
  Serious: Yes (Hospitalization, Other)
  Sender: FDA-Public Use
  Company Number: US-NOVOPROD-855512

PATIENT
  Age: 24 Year
  Sex: Male

DRUGS (1)
  1. NOVOLIN R [Suspect]
     Active Substance: INSULIN HUMAN
     Indication: Type 1 diabetes mellitus
     Dosage: 66 IU, QD (12 IU 3 TIMES DAY WITH MEALS AND 30 UNITS THROUGHOUT THE DAY,TOTAL 60 IU QD)
     Route: 058
     Dates: start: 2016, end: 20210929

REACTIONS (2)
  - Diabetic ketoacidosis [Recovered/Resolved]
  - Drug ineffective [Unknown]

NARRATIVE: CASE EVENT DATE: 20210929
